FAERS Safety Report 6597645-X (Version None)
Quarter: 2010Q1

REPORT INFORMATION
  Report Type: 
  Country: None (occurrence: None)
  Receive Date: 20100219
  Receipt Date: 20100219
  Transmission Date: 20100710
  Serious: Yes (Life-Threatening, Other)
  Sender: FDA-Public Use
  Company Number: None

PATIENT
  Sex: Female
  Weight: 70.3075 kg

DRUGS (1)
  1. SUMATRIPTAN SUCCINATE (IMITREX) [Suspect]
     Indication: MIGRAINE
     Dosage: 100 MG AS NEEDED PO
     Route: 048
     Dates: start: 20091211, end: 20091211

REACTIONS (2)
  - PARAESTHESIA [None]
  - SENSORY LOSS [None]
